FAERS Safety Report 25795819 (Version 1)
Quarter: 2025Q3

REPORT INFORMATION
  Report Type: Other
  Country: CN (occurrence: CN)
  Receive Date: 20250912
  Receipt Date: 20250912
  Transmission Date: 20251020
  Serious: Yes (Life-Threatening, Hospitalization, Congenital Anomaly)
  Sender: EMD SERONO INC
  Company Number: CN-Merck Healthcare KGaA-2025046086

PATIENT
  Sex: Male
  Weight: 2.15 kg

DRUGS (4)
  1. EUTHYROX [Suspect]
     Active Substance: LEVOTHYROXINE SODIUM
     Indication: Hypothyroidism
     Dosage: DRUG TAKEN BY PATIENT^S PARENT
  2. EUTHYROX [Suspect]
     Active Substance: LEVOTHYROXINE SODIUM
     Dosage: DRUG TAKEN BY PATIENT^S PARENT
  3. EUTHYROX [Suspect]
     Active Substance: LEVOTHYROXINE SODIUM
     Dosage: DRUG TAKEN BY PATIENT^S PARENT
  4. METHIMAZOLE [Suspect]
     Active Substance: METHIMAZOLE
     Indication: Hyperthyroidism

REACTIONS (5)
  - Premature baby [Recovered/Resolved]
  - Congenital hyperthyroidism [Unknown]
  - Hydrops foetalis [Unknown]
  - Aortic stenosis [Unknown]
  - Foetal exposure during pregnancy [Recovered/Resolved]
